FAERS Safety Report 14838665 (Version 1)
Quarter: 2018Q2

REPORT INFORMATION
  Report Type: Spontaneous
  Country: AU (occurrence: AU)
  Receive Date: 20180502
  Receipt Date: 20180502
  Transmission Date: 20180711
  Serious: Yes (Hospitalization)
  Sender: FDA-Public Use
  Company Number: AU-MYLANLABS-2018M1027193

PATIENT
  Sex: Female

DRUGS (2)
  1. SPIRACTIN (SPIRONOLACTONE) [Suspect]
     Active Substance: SPIRONOLACTONE
     Indication: OEDEMA PERIPHERAL
     Dosage: UNK, QD
  2. ACIMAX [Concomitant]
     Active Substance: OMEPRAZOLE
     Indication: DYSPEPSIA

REACTIONS (15)
  - Oropharyngeal pain [Recovered/Resolved]
  - Somnolence [Unknown]
  - Nausea [Unknown]
  - Pruritus generalised [Unknown]
  - Chest pain [Not Recovered/Not Resolved]
  - Gait disturbance [Recovering/Resolving]
  - Dizziness [Unknown]
  - Headache [Unknown]
  - Dyspnoea [Unknown]
  - Confusional state [Unknown]
  - Hypoaesthesia [Unknown]
  - Lethargy [Unknown]
  - Paraesthesia [Unknown]
  - Sleep disorder [Unknown]
  - Arthralgia [Unknown]
